FAERS Safety Report 14775462 (Version 5)
Quarter: 2020Q1

REPORT INFORMATION
  Report Type: Spontaneous
  Country: BR (occurrence: BR)
  Receive Date: 20180418
  Receipt Date: 20200204
  Transmission Date: 20200409
  Serious: Yes (Death, Other)
  Sender: FDA-Public Use
  Company Number: BR-ROCHE-2109797

PATIENT
  Sex: Female

DRUGS (9)
  1. ACTONEL [Concomitant]
     Active Substance: RISEDRONATE SODIUM
  2. GLIFAGE [Concomitant]
     Active Substance: METFORMIN HYDROCHLORIDE
  3. GEMCITABINE. [Suspect]
     Active Substance: GEMCITABINE
     Indication: OVARIAN EPITHELIAL CANCER
     Dosage: 6 CYCLES
     Route: 065
     Dates: end: 201801
  4. ATORVASTATIN [Concomitant]
     Active Substance: ATORVASTATIN
  5. AVASTIN [Suspect]
     Active Substance: BEVACIZUMAB
     Dosage: MONOTHERAPY
     Route: 065
  6. LIPOSOMAL DOXORUBICIN HYDROCHLORIDE [Concomitant]
     Active Substance: DOXORUBICIN HYDROCHLORIDE
  7. AVASTIN [Suspect]
     Active Substance: BEVACIZUMAB
     Indication: OVARIAN EPITHELIAL CANCER
     Dosage: 6 CYCLES
     Route: 065
     Dates: end: 201801
  8. CARBOPLATIN. [Suspect]
     Active Substance: CARBOPLATIN
     Indication: OVARIAN EPITHELIAL CANCER
     Dosage: 6 CYCLES
     Route: 065
     Dates: end: 201801
  9. EUTHYROX [Concomitant]
     Active Substance: LEVOTHYROXINE SODIUM

REACTIONS (2)
  - Pneumatosis intestinalis [Unknown]
  - Pneumoperitoneum [Unknown]
